FAERS Safety Report 10021162 (Version 2)
Quarter: 2014Q2

REPORT INFORMATION
  Report Type: Spontaneous
  Country: US (occurrence: US)
  Receive Date: 20140319
  Receipt Date: 20140509
  Transmission Date: 20141212
  Serious: No
  Sender: FDA-Public Use
  Company Number: US-PFIZER INC-2014077058

PATIENT
  Age: 12 Year
  Sex: Female

DRUGS (2)
  1. GENOTROPIN MQ [Suspect]
     Dosage: 1.2 MG, UNK
     Dates: start: 201210
  2. GENOTROPIN MQ [Suspect]
     Dosage: 1.6 MG, UNK
     Dates: end: 20140301

REACTIONS (5)
  - Headache [Recovered/Resolved]
  - Hot flush [Recovered/Resolved]
  - Fatigue [Unknown]
  - Insomnia [Recovered/Resolved]
  - Pain in extremity [Recovered/Resolved]
